FAERS Safety Report 7269873-1 (Version None)
Quarter: 2011Q1

REPORT INFORMATION
  Report Type: 
  Country: None (occurrence: None)
  Receive Date: 20110125
  Receipt Date: 20110111
  Transmission Date: 20110831
  Serious: Yes (Death)
  Sender: FDA-Public Use
  Company Number: B0694540A

PATIENT

DRUGS (3)
  1. PREDNISONE (PREDNISONE) (FORMULATION UNKNOWN) [Suspect]
  2. THALIDOMIDE (THALIDOMIDE) (FORMULATION UNKNOWN) [Suspect]
     Dosage: ORAL
     Route: 048
  3. MELPHALAN HYDROCHLORIDE [Suspect]
     Indication: MULTIPLE MYELOMA
     Dosage: CYCLIC / ORAL
     Route: 048

REACTIONS (1)
  - DEATH [None]
